FAERS Safety Report 10756058 (Version 1)
Quarter: 2015Q1

REPORT INFORMATION
  Report Type: Spontaneous
  Country: US (occurrence: US)
  Receive Date: 20150202
  Receipt Date: 20150202
  Transmission Date: 20150721
  Serious: No
  Sender: FDA-Public Use
  Company Number: US-BAUSCH-BL-2014-001929

PATIENT
  Age: 78 Year
  Sex: Female

DRUGS (5)
  1. COZAAR [Concomitant]
     Active Substance: LOSARTAN POTASSIUM
     Indication: PRODUCT USED FOR UNKNOWN INDICATION
  2. ACIPHEX [Concomitant]
     Active Substance: RABEPRAZOLE SODIUM
     Indication: PRODUCT USED FOR UNKNOWN INDICATION
  3. CELEBREX [Concomitant]
     Active Substance: CELECOXIB
     Indication: PRODUCT USED FOR UNKNOWN INDICATION
  4. ZYLET [Suspect]
     Active Substance: LOTEPREDNOL ETABONATE\TOBRAMYCIN
     Indication: EYE INFLAMMATION
     Route: 047
     Dates: start: 20140408
  5. PLAVIX [Concomitant]
     Active Substance: CLOPIDOGREL BISULFATE
     Indication: PRODUCT USED FOR UNKNOWN INDICATION

REACTIONS (2)
  - Ocular hyperaemia [Unknown]
  - Eye pain [Unknown]

NARRATIVE: CASE EVENT DATE: 20140408
